FAERS Safety Report 8042324-5 (Version None)
Quarter: 2012Q1

REPORT INFORMATION
  Report Type: 
  Country: None (occurrence: None)
  Receive Date: 20120112
  Receipt Date: 20120105
  Transmission Date: 20120608
  Serious: Yes (Hospitalization, Disabling)
  Sender: FDA-Public Use
  Company Number: BR-ASTRAZENECA-2012SE01295

PATIENT
  Age: 87 Year
  Sex: Female
  Weight: 60 kg

DRUGS (8)
  1. METOPROLOL SUCCINATE [Suspect]
     Indication: HYPERTENSION
     Route: 048
     Dates: end: 20100101
  2. METOPROLOL SUCCINATE [Suspect]
     Route: 048
     Dates: start: 20100101
  3. CRESTOR [Suspect]
     Indication: HYPERCHOLESTEROLAEMIA
     Route: 048
  4. GALVUS [Concomitant]
     Route: 048
     Dates: start: 20080101
  5. HYGROTON [Concomitant]
     Dosage: DAILY
     Route: 048
     Dates: start: 20080101
  6. LASIX [Concomitant]
     Route: 048
     Dates: start: 20080101
  7. ATACAND [Suspect]
     Indication: HYPERTENSION
     Route: 048
     Dates: start: 20080101
  8. CARDIO BUFFERIN [Concomitant]
     Route: 048
     Dates: start: 20080101

REACTIONS (6)
  - ARTERIAL OCCLUSIVE DISEASE [None]
  - DRUG PRESCRIBING ERROR [None]
  - BLOOD PRESSURE INCREASED [None]
  - PULMONARY EMBOLISM [None]
  - DRUG INEFFECTIVE [None]
  - HAEMORRHAGE [None]
